FAERS Safety Report 5361735-X (Version None)
Quarter: 2007Q2

REPORT INFORMATION
  Report Type: 
  Country: None (occurrence: None)
  Receive Date: 20070530
  Receipt Date: 20070530
  Transmission Date: 20071010
  Serious: Yes (Hospitalization)
  Sender: FDA-Public Use
  Company Number: None

PATIENT
  Sex: Male
  Weight: 109 kg

DRUGS (6)
  1. AVASTIN [Suspect]
     Indication: TONGUE NEOPLASM MALIGNANT STAGE UNSPECIFIED
     Dosage: 1720MG ONCE IV DRIP
     Route: 041
     Dates: start: 20070509, end: 20070509
  2. FENTANYL TRANSDERMAL SYSTEM [Concomitant]
  3. GAPAPENTIN [Concomitant]
  4. MIRALAX  MAGNESIUM CITRATE OXYCODONE SOLUTION [Concomitant]
  5. ATORVASTATIN [Concomitant]
  6. EZETIMIBE [Concomitant]

REACTIONS (3)
  - DEHYDRATION [None]
  - NECK PAIN [None]
  - TUMOUR PAIN [None]
